FAERS Safety Report 10694566 (Version 2)
Quarter: 2015Q1

REPORT INFORMATION
  Report Type: Report from Study
  Country: CA (occurrence: CA)
  Receive Date: 20150107
  Receipt Date: 20150107
  Transmission Date: 20150721
  Serious: Yes (Other)
  Sender: FDA-Public Use
  Company Number: CA-ROCHE-GNE277841

PATIENT
  Sex: Male

DRUGS (10)
  1. XOLAIR [Suspect]
     Active Substance: OMALIZUMAB
     Indication: ASTHMA
     Route: 058
     Dates: start: 20070824, end: 20100429
  2. NASONEX [Concomitant]
     Active Substance: MOMETASONE FUROATE
  3. NEXIUM [Concomitant]
     Active Substance: ESOMEPRAZOLE MAGNESIUM
  4. ALVESCO [Concomitant]
     Active Substance: CICLESONIDE
  5. PULMICORT TURBUHALER [Concomitant]
     Active Substance: BUDESONIDE
  6. XOLAIR [Suspect]
     Active Substance: OMALIZUMAB
     Route: 058
  7. LIPITOR [Concomitant]
     Active Substance: ATORVASTATIN CALCIUM
  8. SINGULAIR [Concomitant]
     Active Substance: MONTELUKAST SODIUM
  9. XOLAIR [Suspect]
     Active Substance: OMALIZUMAB
     Route: 058
     Dates: start: 20100429, end: 20100429
  10. ADVAIR HFA [Concomitant]
     Active Substance: FLUTICASONE PROPIONATE\SALMETEROL XINAFOATE

REACTIONS (9)
  - Headache [Unknown]
  - Fatigue [Unknown]
  - Pneumonia [Unknown]
  - Eye pain [Unknown]
  - Asthenia [Unknown]
  - Nasal polyps [Unknown]
  - Bronchitis [Unknown]
  - Pain in extremity [Unknown]
  - Sinusitis [Unknown]
